FAERS Safety Report 4279276-X (Version None)
Quarter: 2004Q1

REPORT INFORMATION
  Report Type: 
  Country: None (occurrence: None)
  Receive Date: 20040123
  Receipt Date: 20040107
  Transmission Date: 20041129
  Serious: Yes (Hospitalization, Other)
  Sender: FDA-Public Use
  Company Number: 2004003671

PATIENT
  Age: 67 Year
  Sex: Female

DRUGS (2)
  1. LITHIUM CARBONATE [Suspect]
     Indication: ILL-DEFINED DISORDER
     Dosage: 600 MG (DAILY)
  2. ROFECOXIB [Suspect]
     Indication: ILL-DEFINED DISORDER
     Dosage: 40 MG (DAILY)

REACTIONS (6)
  - DRUG INTERACTION [None]
  - DRUG LEVEL INCREASED [None]
  - DYSARTHRIA [None]
  - HEMIPARESIS [None]
  - RENAL FAILURE [None]
  - RENAL NEOPLASM [None]
